FAERS Safety Report 21491730 (Version 2)
Quarter: 2022Q4

REPORT INFORMATION
  Report Type: Report from Study
  Country: US (occurrence: US)
  Receive Date: 20221021
  Receipt Date: 20221111
  Transmission Date: 20230113
  Serious: Yes (Hospitalization, Other)
  Sender: FDA-Public Use
  Company Number: US-AIMMUNE THERAPEUTICS, INC.-2022AIMT02655

PATIENT

DRUGS (7)
  1. ALLERGENIC EXTRACT- PEANUT ARACHIS HYPOGAEA [Suspect]
     Active Substance: ALLERGENIC EXTRACT- PEANUT ARACHIS HYPOGAEA
     Indication: Food allergy
     Dosage: IDE, (0.5-6MG), ONCE
     Route: 048
     Dates: start: 20221005, end: 20221005
  2. ALLERGENIC EXTRACT- PEANUT ARACHIS HYPOGAEA [Suspect]
     Active Substance: ALLERGENIC EXTRACT- PEANUT ARACHIS HYPOGAEA
     Dosage: 3 MG, 1X/DAY
     Route: 048
     Dates: start: 20221006, end: 20221009
  3. ALLERGENIC EXTRACT- PEANUT ARACHIS HYPOGAEA [Suspect]
     Active Substance: ALLERGENIC EXTRACT- PEANUT ARACHIS HYPOGAEA
     Dosage: 3 MG, ONCE, LAST DOSE PRIOR TO EVENT
     Route: 048
     Dates: start: 20221009, end: 20221009
  4. CHILDRENS BENADRYL ALLERGY [Concomitant]
     Active Substance: DIPHENHYDRAMINE HYDROCHLORIDE
     Indication: Product used for unknown indication
     Dosage: UNK
  5. CETIRIZINE [Concomitant]
     Active Substance: CETIRIZINE HYDROCHLORIDE
     Indication: Product used for unknown indication
     Dosage: 10 MG TABLETS
  6. EPIPEN JR [Concomitant]
     Active Substance: EPINEPHRINE
     Indication: Product used for unknown indication
     Dosage: 0.15 MG
  7. FLONASE [Concomitant]
     Active Substance: FLUTICASONE PROPIONATE
     Indication: Product used for unknown indication
     Dosage: 50 ?G, NAS SP-72SP

REACTIONS (1)
  - Anaphylactic reaction [Recovered/Resolved]

NARRATIVE: CASE EVENT DATE: 20221009
